FAERS Safety Report 10162251 (Version 1)
Quarter: 2014Q2

REPORT INFORMATION
  Report Type: Spontaneous
  Country: US (occurrence: US)
  Receive Date: 20140509
  Receipt Date: 20140509
  Transmission Date: 20141212
  Serious: No
  Sender: FDA-Public Use
  Company Number: US-BAYER-2014-068402

PATIENT
  Age: 70 Year
  Sex: Female
  Weight: 83.9 kg

DRUGS (5)
  1. ALEVE CAPLET [Suspect]
     Indication: MUSCULOSKELETAL PAIN
     Dosage: 1 DF, PRN
     Route: 048
     Dates: start: 2013
  2. NIFEDICAL [Concomitant]
     Dosage: UNK
  3. CLONIDINE [Concomitant]
     Dosage: UNK
  4. BAYER ASPIRIN REGIMEN ADULT LOW STRENGTH [Concomitant]
     Indication: ISCHAEMIC HEART DISEASE PROPHYLAXIS
     Dosage: UNK
     Route: 048
  5. PAXIL [Concomitant]
     Dosage: UNK

REACTIONS (1)
  - Abdominal pain upper [Recovered/Resolved]
